FAERS Safety Report 5754751-7 (Version None)
Quarter: 2008Q2

REPORT INFORMATION
  Report Type: 
  Country: None (occurrence: None)
  Receive Date: 20080530
  Receipt Date: 20080523
  Transmission Date: 20081010
  Serious: Yes (Hospitalization)
  Sender: FDA-Public Use
  Company Number: FR-PFIZER INC-2008045190

PATIENT
  Age: 90 Year
  Sex: Female

DRUGS (14)
  1. AMLOR [Suspect]
     Indication: MYOCARDIAL ISCHAEMIA
     Route: 048
  2. AMLOR [Interacting]
     Dosage: DAILY DOSE:5MG
     Route: 048
  3. TRIATEC [Interacting]
     Indication: MYOCARDIAL ISCHAEMIA
     Route: 048
  4. TRIATEC [Interacting]
     Dosage: DAILY DOSE:5MG
     Route: 048
  5. NITRODERM [Interacting]
     Dosage: TEXT:10 MG/24H-FREQ:EVERY DAY
     Route: 062
  6. XANAX [Concomitant]
  7. LASILIX [Concomitant]
  8. TARDYFERON [Concomitant]
  9. IMOVANE [Concomitant]
  10. PLAVIX [Concomitant]
  11. TRAMADOL HCL [Concomitant]
  12. ACUPAN [Concomitant]
  13. CACIT D3 [Concomitant]
  14. DAFALGAN [Concomitant]

REACTIONS (3)
  - DRUG INTERACTION [None]
  - FALL [None]
  - ORTHOSTATIC HYPOTENSION [None]
